FAERS Safety Report 5889112-3 (Version None)
Quarter: 2008Q3

REPORT INFORMATION
  Report Type: 
  Country: None (occurrence: None)
  Receive Date: 20080919
  Receipt Date: 20080915
  Transmission Date: 20090109
  Serious: Yes (Other)
  Sender: FDA-Public Use
  Company Number: US-CELGENEUS-163-21880-08050663

PATIENT
  Sex: Male

DRUGS (3)
  1. REVLIMID [Suspect]
     Indication: MULTIPLE MYELOMA
     Route: 048
     Dates: start: 20070801
  2. REVLIMID [Suspect]
     Route: 048
     Dates: start: 20070601, end: 20070701
  3. REVLIMID [Suspect]
     Dosage: 20-25 MG
     Route: 048
     Dates: start: 20060501, end: 20070501

REACTIONS (1)
  - MALIGNANT MELANOMA [None]
